FAERS Safety Report 17664065 (Version 1)
Quarter: 2020Q2

REPORT INFORMATION
  Report Type: Spontaneous
  Country: CA (occurrence: CA)
  Receive Date: 20200414
  Receipt Date: 20200414
  Transmission Date: 20200713
  Serious: Yes (Hospitalization, Other)
  Sender: FDA-Public Use
  Company Number: CA-RECORDATI RARE DISEASES-2082813

PATIENT
  Age: 65 Year
  Sex: Male

DRUGS (6)
  1. METFORMIN [Concomitant]
     Active Substance: METFORMIN HYDROCHLORIDE
  2. RAMIPRIL. [Concomitant]
     Active Substance: RAMIPRIL
     Dates: start: 20141124
  3. DOXYCYCLINE. [Concomitant]
     Active Substance: DOXYCYCLINE
     Dates: start: 20170502
  4. SIGNIFOR [Suspect]
     Active Substance: PASIREOTIDE DIASPARTATE
     Route: 030
     Dates: start: 20060801
  5. SIGNIFOR LAR [Suspect]
     Active Substance: PASIREOTIDE PAMOATE
     Indication: ACROMEGALY
     Route: 030
     Dates: start: 1999
  6. CORTISONE [Suspect]
     Active Substance: CORTISONE
     Route: 065

REACTIONS (19)
  - Blood sodium decreased [Recovered/Resolved]
  - Blood pressure diastolic decreased [Unknown]
  - Vomiting [Unknown]
  - Nervousness [Unknown]
  - Fall [Unknown]
  - Memory impairment [Unknown]
  - Blood creatinine increased [Unknown]
  - Heart rate decreased [Unknown]
  - Sleep apnoea syndrome [Unknown]
  - Fatigue [Unknown]
  - Hyperglycaemia [Recovering/Resolving]
  - Pulmonary embolism [Unknown]
  - Cerebral disorder [Unknown]
  - Pain [Unknown]
  - Hypoglycaemia [Unknown]
  - Dementia Alzheimer^s type [Unknown]
  - Cognitive disorder [Unknown]
  - Blood pressure systolic increased [Unknown]
  - Nausea [Unknown]

NARRATIVE: CASE EVENT DATE: 201504
